FAERS Safety Report 7937015-2 (Version None)
Quarter: 2011Q4

REPORT INFORMATION
  Report Type: 
  Country: None (occurrence: None)
  Receive Date: 20111123
  Receipt Date: 20111108
  Transmission Date: 20120403
  Serious: Yes (Life-Threatening, Hospitalization)
  Sender: FDA-Public Use
  Company Number: DE-ROCHE-688383

PATIENT
  Sex: Female
  Weight: 100 kg

DRUGS (2)
  1. AVASTIN [Suspect]
     Indication: BREAST CANCER METASTATIC
     Dosage: FROM 17 NOV 2009 UNTIL 14 JAN 2010 IN COMBINATION WITH PACLITAXEL
     Route: 065
     Dates: start: 20091117, end: 20100204
  2. TAXOL [Concomitant]
     Indication: BREAST CANCER METASTATIC
     Dosage: 6 CYCLES
     Dates: start: 20091117, end: 20100114

REACTIONS (6)
  - IMPAIRED HEALING [None]
  - DIARRHOEA [None]
  - OEDEMA [None]
  - INTESTINAL PERFORATION [None]
  - PNEUMOTHORAX [None]
  - PNEUMONIA [None]
